FAERS Safety Report 20004766 (Version 1)
Quarter: 2021Q4

REPORT INFORMATION
  Report Type: Spontaneous
  Country: JP (occurrence: JP)
  Receive Date: 20211028
  Receipt Date: 20211028
  Transmission Date: 20220303
  Serious: Yes (Hospitalization, Other)
  Sender: FDA-Public Use
  Company Number: JP-NOVARTISPH-NVSJ2021JP017360

PATIENT
  Age: 59 Year
  Sex: Female
  Weight: 58 kg

DRUGS (8)
  1. QUETIAPINE [Interacting]
     Active Substance: QUETIAPINE
     Indication: Schizophrenia
     Dosage: 400 MG
     Route: 048
  2. QUETIAPINE [Interacting]
     Active Substance: QUETIAPINE
     Dosage: 100 MG
     Route: 048
  3. PROPOFOL [Interacting]
     Active Substance: PROPOFOL
     Indication: General anaesthesia
     Dosage: UNK
     Route: 065
  4. REMIFENTANIL [Interacting]
     Active Substance: REMIFENTANIL
     Indication: General anaesthesia
     Dosage: UNK
     Route: 065
  5. ROCURONIUM [Interacting]
     Active Substance: ROCURONIUM BROMIDE
     Indication: General anaesthesia
     Dosage: UNK
     Route: 065
  6. FENTANYL [Interacting]
     Active Substance: FENTANYL
     Indication: General anaesthesia
     Dosage: UNK
     Route: 065
  7. BREXPIPRAZOLE [Concomitant]
     Active Substance: BREXPIPRAZOLE
     Indication: Schizophrenia
     Dosage: 2 MG
     Route: 048
  8. PERAMPANEL [Concomitant]
     Active Substance: PERAMPANEL
     Indication: Sensory disturbance
     Dosage: 2 MG
     Route: 065

REACTIONS (2)
  - Procedural hypotension [Recovered/Resolved]
  - Procedural hypotension [Recovered/Resolved]
